FAERS Safety Report 19675698 (Version 1)
Quarter: 2021Q3

REPORT INFORMATION
  Report Type: Spontaneous
  Country: CH (occurrence: CH)
  Receive Date: 20210809
  Receipt Date: 20210809
  Transmission Date: 20211014
  Serious: Yes (Other)
  Sender: FDA-Public Use
  Company Number: CH-ORGANON-O2108CHE000551

PATIENT
  Sex: Female

DRUGS (1)
  1. ETONOGESTREL IMPLANT? UNKNOWN [Suspect]
     Active Substance: ETONOGESTREL
     Dosage: 1 IMPLANT
     Route: 059

REACTIONS (5)
  - Device issue [Unknown]
  - Unintended pregnancy [Unknown]
  - Complication associated with device [Unknown]
  - Product dose omission issue [Unknown]
  - Pregnancy with implant contraceptive [Unknown]
